FAERS Safety Report 8771522 (Version 2)
Quarter: 2012Q4

REPORT INFORMATION
  Report Type: 
  Country: FR (occurrence: FR)
  Receive Date: 20120905
  Receipt Date: 20120919
  Transmission Date: 20130627
  Serious: Yes (Death)
  Sender: FDA-Public Use
  Company Number: SE-WATSON-2012-15234

PATIENT
  Age: 43 Year
  Sex: Female

DRUGS (7)
  1. PREDNISONE (UNKNOWN) [Suspect]
     Indication: POLYMYOSITIS
     Dosage: 1 mg/kg, daily
     Route: 065
  2. AZATHIOPRINE (UNKNOWN) [Suspect]
     Indication: POLYMYOSITIS
     Dosage: UNK mg, daily
     Route: 065
  3. CYCLOSPORINE (WATSON LABORATORIES) [Suspect]
     Indication: POLYMYOSITIS
     Dosage: UNK
     Route: 065
  4. MYCOPHENOLATE MOFETIL (UNKNOWN) [Suspect]
     Indication: POLYMYOSITIS
     Dosage: UNK
     Route: 065
  5. METHOTREXATE [Suspect]
     Indication: POLYMYOSITIS
     Dosage: UNK mg, 1/week
     Route: 065
  6. IMMUNOGLOBULIN [Suspect]
     Indication: POLYMYOSITIS
     Dosage: UNK
     Route: 065
  7. RITUXIMAB [Suspect]
     Dosage: UNK
     Route: 065

REACTIONS (1)
  - Progressive multifocal leukoencephalopathy [Fatal]
